FAERS Safety Report 20154523 (Version 1)
Quarter: 2021Q4

REPORT INFORMATION
  Report Type: Other
  Country: IT (occurrence: None)
  Receive Date: 20211207
  Receipt Date: 20211207
  Transmission Date: 20220303
  Serious: Yes (Hospitalization)
  Sender: FDA-Public Use
  Company Number: IT-ROCHE-2970159

PATIENT
  Age: 73 Year
  Sex: Male

DRUGS (9)
  1. TOCILIZUMAB [Suspect]
     Active Substance: TOCILIZUMAB
     Indication: Acute respiratory failure
     Route: 042
  2. TOCILIZUMAB [Suspect]
     Active Substance: TOCILIZUMAB
     Indication: COVID-19 pneumonia
  3. CEFTRIAXONE [Suspect]
     Active Substance: CEFTRIAXONE
     Indication: COVID-19 pneumonia
     Route: 065
  4. CEFTRIAXONE [Suspect]
     Active Substance: CEFTRIAXONE
     Indication: Acute respiratory failure
  5. HYDROXYCHLOROQUINE [Concomitant]
     Active Substance: HYDROXYCHLOROQUINE
     Route: 065
  6. AZITHROMYCIN [Concomitant]
     Active Substance: AZITHROMYCIN
     Route: 065
  7. MEROPENEM [Concomitant]
     Active Substance: MEROPENEM
  8. AMPICILLIN [Concomitant]
     Active Substance: AMPICILLIN
  9. OXYGEN [Concomitant]
     Active Substance: OXYGEN

REACTIONS (3)
  - COVID-19 pneumonia [Recovered/Resolved]
  - Off label use [Unknown]
  - Off label use [Unknown]
